FAERS Safety Report 16647687 (Version 1)
Quarter: 2019Q3

REPORT INFORMATION
  Report Type: Spontaneous
  Country: US (occurrence: US)
  Receive Date: 20190729
  Receipt Date: 20190729
  Transmission Date: 20191004
  Serious: Yes (Hospitalization)
  Sender: FDA-Public Use
  Company Number: None

PATIENT
  Age: 73 Year
  Sex: Female

DRUGS (2)
  1. CONTOUR [Concomitant]
  2. FORTEO [Suspect]
     Active Substance: TERIPARATIDE
     Indication: PRODUCT USED FOR UNKNOWN INDICATION
     Route: 058
     Dates: start: 20180130

REACTIONS (5)
  - Dyspnoea [None]
  - Headache [None]
  - Cough [None]
  - Muscular weakness [None]
  - Bone pain [None]

NARRATIVE: CASE EVENT DATE: 20190701
